FAERS Safety Report 5425218-0 (Version None)
Quarter: 2007Q3

REPORT INFORMATION
  Report Type: 
  Country: None (occurrence: None)
  Receive Date: 20070824
  Receipt Date: 20070815
  Transmission Date: 20080115
  Serious: Yes (Death, Other)
  Sender: FDA-Public Use
  Company Number: GB-PURDUE-GBR_2007_0003194

PATIENT
  Age: 56 Year
  Sex: Male

DRUGS (2)
  1. OXYCODONE HYDROCHLORIDE [Suspect]
     Indication: NEURALGIA
     Dosage: 900 MG, TID
     Route: 048
  2. GABAPENTIN [Suspect]
     Indication: NEURALGIA
     Dosage: 100 MG, PRN
     Route: 048

REACTIONS (5)
  - CONFUSIONAL STATE [None]
  - DEATH [None]
  - DRUG INTERACTION [None]
  - HALLUCINATION [None]
  - NEUROTOXICITY [None]
